FAERS Safety Report 4430584-9 (Version None)
Quarter: 2004Q3

REPORT INFORMATION
  Report Type: 
  Country: None (occurrence: None)
  Receive Date: 20040818
  Receipt Date: 20040802
  Transmission Date: 20050211
  Serious: Yes (Other)
  Sender: FDA-Public Use
  Company Number: B0341735B

PATIENT

DRUGS (4)
  1. RETROVIR [Suspect]
  2. EPIVIR [Suspect]
     Dosage: TRANSPLACENTARY
     Route: 064
  3. STAVUDINE (STAVUDINE) [Suspect]
     Dosage: TRANSPLACENTARY
     Route: 064
  4. INDINAVIR (INDINAVIR (INDINAVIR SULFATE) [Suspect]
     Dosage: TRANSPLACENTARY
     Route: 064

REACTIONS (3)
  - CEREBRAL HAEMORRHAGE [None]
  - DRUG EXPOSURE DURING PREGNANCY [None]
  - HAEMANGIOMA [None]
